FAERS Safety Report 12895894 (Version 2)
Quarter: 2017Q2

REPORT INFORMATION
  Report Type: Spontaneous
  Country: US (occurrence: US)
  Receive Date: 20161031
  Receipt Date: 20170403
  Transmission Date: 20170830
  Serious: No
  Sender: FDA-Public Use
  Company Number: US-JNJFOC-20161014647

PATIENT
  Sex: Female

DRUGS (1)
  1. INVOKANA [Suspect]
     Active Substance: CANAGLIFLOZIN
     Indication: PRODUCT USED FOR UNKNOWN INDICATION
     Route: 048
     Dates: start: 20161015, end: 201610

REACTIONS (7)
  - Somnolence [Not Recovered/Not Resolved]
  - Lip swelling [Not Recovered/Not Resolved]
  - Oropharyngeal pain [Recovered/Resolved]
  - Dysuria [Unknown]
  - Thirst [Not Recovered/Not Resolved]
  - Fatigue [Recovered/Resolved]
  - Asthenia [Unknown]

NARRATIVE: CASE EVENT DATE: 201610
